FAERS Safety Report 5488249-0 (Version None)
Quarter: 2007Q4

REPORT INFORMATION
  Report Type: 
  Country: None (occurrence: None)
  Receive Date: 20071005
  Receipt Date: 20070717
  Transmission Date: 20080405
  Serious: No
  Sender: FDA-Public Use
  Company Number: PHEH2007US10090

PATIENT
  Age: 75 Year
  Sex: Female

DRUGS (3)
  1. TEKTURNA [Suspect]
     Dosage: 150 MG, QD, ORAL
     Route: 048
     Dates: start: 20070403, end: 20070711
  2. NORVASC [Concomitant]
  3. LABETALOL HCL [Concomitant]

REACTIONS (1)
  - DYSPNOEA [None]
